FAERS Safety Report 21644242 (Version 1)
Quarter: 2022Q4

REPORT INFORMATION
  Report Type: Spontaneous
  Country: NL (occurrence: None)
  Receive Date: 20221125
  Receipt Date: 20221125
  Transmission Date: 20230113
  Serious: Yes (Life-Threatening)
  Sender: FDA-Public Use
  Company Number: 2022A383421

PATIENT
  Sex: Male
  Weight: 83 kg

DRUGS (9)
  1. OLAPARIB [Suspect]
     Active Substance: OLAPARIB
     Indication: Prostate cancer metastatic
     Dosage: 2 X PER DAG 2 STUKS
     Route: 065
     Dates: start: 20220906, end: 20221108
  2. FLUTICASON AEROSOL [Concomitant]
     Dosage: AEROSOL, 250 ?G/DOSIS (MICROGRAM PER DOSIS)
     Route: 065
  3. LEVOCETIRIZINE [Concomitant]
     Active Substance: LEVOCETIRIZINE
     Dosage: FILMOMHULDE TABLET, 5 MG (MILLIGRAM)
     Route: 065
  4. SALBUTAMOL INHALATIEPOEDER [Concomitant]
     Dosage: INHALATIEPOEDER, 200 ?G/DOSIS (MICROGRAM PER DOSIS)
     Route: 065
  5. ENALAPRIL\HYDROCHLOROTHIAZIDE [Concomitant]
     Active Substance: ENALAPRIL\HYDROCHLOROTHIAZIDE
     Dosage: TABLET, 20/12,5 MG (MILLIGRAM)
     Route: 065
  6. ZOLADEX IMPLANTATIESTIFT [Concomitant]
     Dosage: IMPLANTATIESTIFT, 10,8 MG (MILLIGRAM)
     Route: 065
  7. AMLODIPINE [Concomitant]
     Active Substance: AMLODIPINE BESYLATE
     Dosage: TABLET, 10 MG (MILLIGRAM)
     Route: 065
  8. CALCIUMCARB/COLECALC KAUWTB [Concomitant]
     Dosage: KAUWTABLET, 1,25 G (GRAM)/800 EENHEDEN
     Route: 065
  9. MACROGOL/ZOUTEN PDR V DRANK [Concomitant]
     Dosage: POEDER VOOR DRANK
     Route: 065

REACTIONS (1)
  - Anaemia [Recovering/Resolving]
